FAERS Safety Report 22048853 (Version 2)
Quarter: 2023Q1

REPORT INFORMATION
  Report Type: Report from Study
  Country: NL (occurrence: NL)
  Receive Date: 20230301
  Receipt Date: 20230330
  Transmission Date: 20230418
  Serious: Yes (Hospitalization)
  Sender: FDA-Public Use
  Company Number: NL-ABBVIE-4218709

PATIENT
  Age: 67 Year
  Sex: Female

DRUGS (18)
  1. CARBIDOPA\LEVODOPA [Suspect]
     Active Substance: CARBIDOPA\LEVODOPA
     Indication: Parkinson^s disease
     Dosage: MD: 9.0ML, CD: 4.2ML/H, ED: 3.2ML?DURATION TEXT: REMAINS AT 16 HOURS
     Route: 050
  2. CARBIDOPA\LEVODOPA [Suspect]
     Active Substance: CARBIDOPA\LEVODOPA
     Dosage: MD: 10.0ML, CD: 4.2ML/H, ED: 3.2ML
     Route: 050
  3. CARBIDOPA\LEVODOPA [Suspect]
     Active Substance: CARBIDOPA\LEVODOPA
     Dosage: MD: 11.0 ML; CD:2.7 ML/H; ED: 2.0 ML?DURATION TEXT: REMAINS AT 16 HOURS
     Route: 050
  4. CARBIDOPA\LEVODOPA [Suspect]
     Active Substance: CARBIDOPA\LEVODOPA
     Dosage: MD: 9.0ML, CD: 4.3ML/H, ED: 4.0ML?DURATION TEXT: REMAINS AT 16 HOURS
     Route: 050
  5. CARBIDOPA\LEVODOPA [Suspect]
     Active Substance: CARBIDOPA\LEVODOPA
     Route: 050
     Dates: start: 20220830
  6. CARBIDOPA\LEVODOPA [Suspect]
     Active Substance: CARBIDOPA\LEVODOPA
     Dosage: MD: 9.0ML, CD: 3.7ML/H, ED: 4.0ML?DURATION TEXT: REMAINS AT 16 HOURS
     Route: 050
  7. CARBIDOPA\LEVODOPA [Suspect]
     Active Substance: CARBIDOPA\LEVODOPA
     Dosage: MD: 9.0ML, CD: 4.0ML/H, ED: 4.0ML?DURATION TEXT: REMAINS AT 16 HOURS
     Route: 050
  8. CARBIDOPA\LEVODOPA [Suspect]
     Active Substance: CARBIDOPA\LEVODOPA
     Dosage: END: 3.2ML CD: 3.0ML/H
  9. CARBIDOPA\LEVODOPA [Suspect]
     Active Substance: CARBIDOPA\LEVODOPA
     Dosage: MD: 9.0ML, CD: 3.5ML/H, ED: 4.0ML?DURATION TEXT: REMAINS AT 16 HOURS
     Route: 050
  10. CARBIDOPA\LEVODOPA [Suspect]
     Active Substance: CARBIDOPA\LEVODOPA
     Dosage: MD: 9.0ML, CD: 4.1ML/H, ED: 3.5ML?DURATION TEXT: REMAINS AT 16 HOURS
     Route: 050
  11. CARBIDOPA\LEVODOPA [Suspect]
     Active Substance: CARBIDOPA\LEVODOPA
     Dosage: MD: 10.0ML, CD: 4.2ML/H, ED: 3.2ML?DURATION TEXT: REMAINS AT 16 HOURS
     Route: 050
  12. CARBIDOPA\LEVODOPA [Suspect]
     Active Substance: CARBIDOPA\LEVODOPA
     Dosage: MD: 11.0ML, CD: 4.2ML/H, ED: 3.2ML,?REMAINS AT 16 HOURS
     Route: 050
  13. MAGNESIUM [Concomitant]
     Active Substance: MAGNESIUM
     Indication: Product used for unknown indication
  14. CARBIDOPA AND LEVODOPA [Concomitant]
     Active Substance: CARBIDOPA\LEVODOPA
     Indication: Parkinson^s disease
     Dosage: 100/25 MG
     Route: 048
  15. ALBUTEROL [Concomitant]
     Active Substance: ALBUTEROL
     Indication: Asthma
     Route: 048
  16. LEVODOPA [Concomitant]
     Active Substance: LEVODOPA
     Indication: Parkinson^s disease
     Dosage: FREQUENCY TEXT: EVERY 2 HOURS AT NIGHT
  17. BUDESONIDE [Concomitant]
     Active Substance: BUDESONIDE
     Indication: Asthma
     Route: 048
  18. SALMETEROL [Concomitant]
     Active Substance: SALMETEROL
     Indication: Asthma
     Route: 048

REACTIONS (21)
  - Weight decreased [Recovering/Resolving]
  - Muscle spasms [Not Recovered/Not Resolved]
  - Food interaction [Not Recovered/Not Resolved]
  - Fibroma [Recovering/Resolving]
  - Muscle rigidity [Not Recovered/Not Resolved]
  - On and off phenomenon [Not Recovered/Not Resolved]
  - Viral infection [Unknown]
  - Therapeutic product effect delayed [Not Recovered/Not Resolved]
  - Bradykinesia [Not Recovered/Not Resolved]
  - Stoma site erythema [Not Recovered/Not Resolved]
  - Unevaluable event [Not Recovered/Not Resolved]
  - Dyskinesia [Recovered/Resolved]
  - Stoma site discharge [Not Recovered/Not Resolved]
  - Underweight [Not Recovered/Not Resolved]
  - Nocturia [Not Recovered/Not Resolved]
  - Malaise [Not Recovered/Not Resolved]
  - Dystonia [Not Recovered/Not Resolved]
  - Pain [Not Recovered/Not Resolved]
  - Parenteral nutrition [Recovered/Resolved]
  - Dental prosthesis placement [Unknown]
  - Parkinson^s disease [Not Recovered/Not Resolved]

NARRATIVE: CASE EVENT DATE: 20230101
